FAERS Safety Report 18973869 (Version 2)
Quarter: 2021Q1

REPORT INFORMATION
  Report Type: Spontaneous
  Country: US (occurrence: US)
  Receive Date: 20210305
  Receipt Date: 20210308
  Transmission Date: 20210420
  Serious: No
  Sender: FDA-Public Use
  Company Number: US-MYLANLABS-2021M1011781

PATIENT
  Sex: Female
  Weight: 58.96 kg

DRUGS (2)
  1. XULANE [Suspect]
     Active Substance: ETHINYL ESTRADIOL\NORELGESTROMIN
     Indication: PRODUCT USED FOR UNKNOWN INDICATION
     Dosage: 35/150 MICROGRAM
     Route: 062
  2. XULANE [Suspect]
     Active Substance: ETHINYL ESTRADIOL\NORELGESTROMIN
     Dosage: 35/150 MICROGRAM
     Route: 062

REACTIONS (2)
  - Product adhesion issue [Recovering/Resolving]
  - Wrong technique in product usage process [Not Recovered/Not Resolved]
